FAERS Safety Report 8903454 (Version 3)
Quarter: 2012Q4

REPORT INFORMATION
  Report Type: 
  Country: ZA (occurrence: ZA)
  Receive Date: 20121113
  Receipt Date: 20121220
  Transmission Date: 20130627
  Serious: Yes (Death, Hospitalization)
  Sender: FDA-Public Use
  Company Number: ZA-JNJFOC-20121103444

PATIENT
  Age: 71 None
  Sex: Male

DRUGS (1)
  1. REVELLEX [Suspect]
     Indication: PRODUCT USED FOR UNKNOWN INDICATION
     Route: 042
     Dates: start: 20070208

REACTIONS (6)
  - Septic shock [Fatal]
  - Acute respiratory distress syndrome [Fatal]
  - Thyroglossal cyst [Fatal]
  - Multi-organ failure [Fatal]
  - Pleural effusion [Fatal]
  - Pneumonia [Fatal]
